FAERS Safety Report 18911710 (Version 3)
Quarter: 2021Q4

REPORT INFORMATION
  Report Type: Report from Study
  Country: IE (occurrence: IE)
  Receive Date: 20210218
  Receipt Date: 20211011
  Transmission Date: 20220304
  Serious: Yes (Hospitalization)
  Sender: FDA-Public Use
  Company Number: IE-PFIZER INC-2021133271

PATIENT
  Weight: 57 kg

DRUGS (11)
  1. MITOXANTRONE HYDROCHLORIDE [Suspect]
     Active Substance: MITOXANTRONE HYDROCHLORIDE
     Indication: Acute myeloid leukaemia
     Dosage: 18.8 MG/M2, 1X/DAY (COURSE 1)
     Route: 041
     Dates: start: 20210126, end: 20210129
  2. GEMTUZUMAB OZOGAMICIN [Suspect]
     Active Substance: GEMTUZUMAB OZOGAMICIN
     Indication: Acute myeloid leukaemia
     Dosage: 4.8 MG (COURSE 1)
     Route: 042
     Dates: start: 20210129, end: 20210129
  3. AMPHOTERICIN B [Concomitant]
     Active Substance: AMPHOTERICIN B
     Indication: Prophylaxis
     Dosage: 59.0 MG (OTHER)
     Dates: start: 20210131, end: 20210203
  4. COTRIMOXAZOLE [Concomitant]
     Active Substance: SULFAMETHOXAZOLE\TRIMETHOPRIM
     Indication: Prophylaxis
     Dosage: 960 MG, 2X/DAY (OTHER - EVERY 12 HRS)
     Dates: start: 20210201, end: 20210202
  5. POSACONAZOLE [Concomitant]
     Active Substance: POSACONAZOLE
     Indication: Antifungal prophylaxis
     Dosage: 300 MG, 1X/DAY (OTHER - EVERY 24 HRS)
     Dates: start: 20210204, end: 20210205
  6. ONDANSETRON [Concomitant]
     Active Substance: ONDANSETRON
     Indication: Antiemetic supportive care
     Dosage: 8 MG, 3X/DAY (OTHER- EVERY 8 HRS)
     Dates: start: 20210131, end: 20210205
  7. ENOXAPARIN [Concomitant]
     Active Substance: ENOXAPARIN
     Indication: Anticoagulant therapy
     Dosage: 90 MG, 2X/DAY (OTHER - EVERY 12 HRS)
     Dates: start: 20210131, end: 20210204
  8. PREDNISONE [Concomitant]
     Active Substance: PREDNISONE
     Indication: Antiinflammatory therapy
     Dosage: 5 MG, 1X/DAY (OTHER - EVERY 24 HRS)
     Dates: start: 20210131, end: 20210203
  9. HEPARIN SODIUM [Concomitant]
     Active Substance: HEPARIN SODIUM
     Indication: Flushing
     Dosage: 2 ML (OTHER)
     Dates: start: 20210131
  10. LEVOMEPROMAZINE [Concomitant]
     Active Substance: LEVOMEPROMAZINE
     Indication: Psychotic disorder
     Dosage: 3 MG, 2X/DAY (OTHER - EVERY 12 HRS)
     Dates: start: 20210202
  11. ORAMORPH SR SUSTAINED RELEASE [Concomitant]
     Active Substance: MORPHINE SULFATE
     Indication: Pain
     Dosage: 5 MG (EVERY 1-2 HOURS) (OTHER)
     Dates: start: 20210202, end: 20210204

REACTIONS (1)
  - Febrile neutropenia [Recovered/Resolved]

NARRATIVE: CASE EVENT DATE: 20210205
